FAERS Safety Report 14380234 (Version 16)
Quarter: 2018Q3

REPORT INFORMATION
  Report Type: Report from Study
  Country: DE (occurrence: DE)
  Receive Date: 20180112
  Receipt Date: 20180703
  Transmission Date: 20181010
  Serious: Yes (Other)
  Sender: FDA-Public Use
  Company Number: DE-PFIZER INC-2018010950

PATIENT
  Age: 71 Year
  Sex: Male
  Weight: 87 kg

DRUGS (32)
  1. IRINOTECAN HCL [Suspect]
     Active Substance: IRINOTECAN HYDROCHLORIDE
     Dosage: 363 MG, BIW
     Route: 042
     Dates: start: 20160222, end: 20160222
  2. IRINOTECAN HCL [Suspect]
     Active Substance: IRINOTECAN HYDROCHLORIDE
     Dosage: 272 MG, BIW
     Route: 042
     Dates: start: 20160613, end: 20160613
  3. FLUOROURACIL 5 FU [Suspect]
     Active Substance: FLUOROURACIL
     Dosage: 606 MG, 2X/WEEK
     Route: 041
     Dates: start: 20160613, end: 20160613
  4. FLUOROURACIL 5 FU [Suspect]
     Active Substance: FLUOROURACIL
     Dosage: 612 MG, 2X/WEEK
     Route: 041
     Dates: start: 20160711, end: 20160711
  5. FOLINIC ACID [Concomitant]
     Active Substance: LEUCOVORIN
     Dosage: 808 MG, EVERY 2 WEEKS
     Route: 042
     Dates: start: 20160222, end: 20160222
  6. IRINOTECAN HCL [Suspect]
     Active Substance: IRINOTECAN HYDROCHLORIDE
     Dosage: 270 MG, BIW
     Route: 042
     Dates: start: 20160425, end: 20160425
  7. IRINOTECAN HCL [Suspect]
     Active Substance: IRINOTECAN HYDROCHLORIDE
     Dosage: 272 MG, BIW
     Route: 042
     Dates: start: 20160627, end: 20160627
  8. FLUOROURACIL 5 FU [Suspect]
     Active Substance: FLUOROURACIL
     Dosage: 600 MG, 2X/WEEK
     Route: 041
     Dates: start: 20160411, end: 20160411
  9. AVASTIN [Suspect]
     Active Substance: BEVACIZUMAB
     Dosage: 420 MG, 2X/WEEK
     Route: 042
     Dates: start: 20160615, end: 20160615
  10. FOLINIC ACID [Concomitant]
     Active Substance: LEUCOVORIN
     Dosage: 606 MG, EVERY 2 WEEKS
     Route: 042
     Dates: start: 20160613, end: 20160613
  11. FOLINIC ACID [Concomitant]
     Active Substance: LEUCOVORIN
     Dosage: 612 MG, EVERY 2 WEEKS
     Route: 042
     Dates: start: 20160711, end: 20160711
  12. FLUOROURACIL 5 FU [Suspect]
     Active Substance: FLUOROURACIL
     Dosage: 606 MG, 2X/WEEK
     Route: 041
     Dates: start: 20160330, end: 20160330
  13. FLUOROURACIL 5 FU [Suspect]
     Active Substance: FLUOROURACIL
     Dosage: 600 MG, 2X/WEEK
     Route: 041
     Dates: start: 20160425, end: 20160425
  14. OXALIPLATIN. [Concomitant]
     Active Substance: OXALIPLATIN
     Indication: COLORECTAL CANCER
     Dosage: 129 MG, BIW
     Route: 042
     Dates: start: 20160919, end: 20160919
  15. IRINOTECAN HCL [Suspect]
     Active Substance: IRINOTECAN HYDROCHLORIDE
     Indication: COLORECTAL CANCER
     Dosage: 272 MG, BIW
     Route: 042
     Dates: start: 20160208, end: 20160208
  16. IRINOTECAN HCL [Suspect]
     Active Substance: IRINOTECAN HYDROCHLORIDE
     Dosage: 272 MG, BIW
     Route: 042
     Dates: start: 20160330, end: 20160330
  17. FLUOROURACIL 5 FU [Suspect]
     Active Substance: FLUOROURACIL
     Indication: COLORECTAL CANCER
     Dosage: 2X/WEEK (DOSAGES BETWEEN 600 MG AND 808 MG)
     Route: 041
     Dates: start: 20160208, end: 20160208
  18. FOLINIC ACID [Concomitant]
     Active Substance: LEUCOVORIN
     Dosage: 606 MG, EVERY 2 WEEKS
     Route: 042
     Dates: start: 20160314, end: 20160314
  19. FOLINIC ACID [Concomitant]
     Active Substance: LEUCOVORIN
     Dosage: 600 MG, EVERY 2 WEEKS
     Route: 042
     Dates: start: 20160425, end: 20160425
  20. FLUOROURACIL 5 FU [Suspect]
     Active Substance: FLUOROURACIL
     Dosage: 606 MG, 2X/WEEK
     Route: 041
     Dates: start: 20160314, end: 20160314
  21. IRINOTECAN HCL [Suspect]
     Active Substance: IRINOTECAN HYDROCHLORIDE
     Dosage: 272 MG, BIW
     Route: 042
     Dates: start: 20160314, end: 20160314
  22. FLUOROURACIL 5 FU [Suspect]
     Active Substance: FLUOROURACIL
     Dosage: 808 MG, 2X/WEEK
     Route: 041
     Dates: start: 20160222, end: 20160222
  23. FOLINIC ACID [Concomitant]
     Active Substance: LEUCOVORIN
     Indication: COLORECTAL CANCER
     Dosage: 600 MG, EVERY 2 WEEKS
     Route: 042
     Dates: start: 20160208, end: 20160208
  24. FOLINIC ACID [Concomitant]
     Active Substance: LEUCOVORIN
     Dosage: 606 MG, EVERY 2 WEEKS
     Route: 042
     Dates: start: 20160330, end: 20160330
  25. VALSARTAN. [Concomitant]
     Active Substance: VALSARTAN
     Indication: HYPERTENSION
     Dosage: 80 MG, EVERY 10 DAYS
     Route: 048
  26. IRINOTECAN HCL [Suspect]
     Active Substance: IRINOTECAN HYDROCHLORIDE
     Dosage: 275 MG, BIW
     Route: 042
     Dates: start: 20160711, end: 20160711
  27. FLUOROURACIL 5 FU [Suspect]
     Active Substance: FLUOROURACIL
     Dosage: 606 MG, 2X/WEEK
     Route: 041
     Dates: start: 20160430, end: 20160430
  28. FOLINIC ACID [Concomitant]
     Active Substance: LEUCOVORIN
     Dosage: 606 MG, EVERY 2 WEEKS
     Route: 042
     Dates: start: 20160627, end: 20160627
  29. IRINOTECAN HCL [Suspect]
     Active Substance: IRINOTECAN HYDROCHLORIDE
     Dosage: 270 MG, BIW
     Route: 042
     Dates: start: 20160411, end: 20160411
  30. FLUOROURACIL 5 FU [Suspect]
     Active Substance: FLUOROURACIL
     Dosage: 606 MG, 2X/WEEK
     Route: 041
     Dates: start: 20160627, end: 20160627
  31. AVASTIN [Suspect]
     Active Substance: BEVACIZUMAB
     Indication: COLORECTAL CANCER
     Dosage: 840 MG, WEEKLY
     Route: 042
     Dates: start: 20160224
  32. FOLINIC ACID [Concomitant]
     Active Substance: LEUCOVORIN
     Dosage: 600 MG, EVERY 2 WEEKS
     Route: 042
     Dates: start: 20160411, end: 20160411

REACTIONS (4)
  - Epistaxis [Recovered/Resolved]
  - Off label use [Unknown]
  - Neutropenia [Recovered/Resolved]
  - Inappropriate schedule of drug administration [Unknown]

NARRATIVE: CASE EVENT DATE: 20160307
